FAERS Safety Report 25580461 (Version 1)
Quarter: 2025Q3

REPORT INFORMATION
  Report Type: Spontaneous
  Country: US (occurrence: US)
  Receive Date: 20250718
  Receipt Date: 20250718
  Transmission Date: 20251021
  Serious: No
  Sender: NOVO NORDISK
  Company Number: US-NOVOPROD-1404329

PATIENT
  Sex: Male

DRUGS (1)
  1. WEGOVY [Suspect]
     Active Substance: SEMAGLUTIDE
     Indication: Weight control
     Dates: start: 20240205

REACTIONS (7)
  - Decreased appetite [Unknown]
  - Depression [Unknown]
  - Taste disorder [Unknown]
  - Weight decreased [Unknown]
  - Injection site swelling [Unknown]
  - Injection site pain [Unknown]
  - Wrong technique in product usage process [Unknown]
